FAERS Safety Report 7478385-1 (Version None)
Quarter: 2011Q2

REPORT INFORMATION
  Report Type: 
  Country: None (occurrence: None)
  Receive Date: 20110505
  Receipt Date: 20110421
  Transmission Date: 20111010
  Serious: Yes (Hospitalization, Other)
  Sender: FDA-Public Use
  Company Number: 031490

PATIENT
  Sex: Male
  Weight: 122.5 kg

DRUGS (7)
  1. LACOSAMIDE [Suspect]
     Indication: MIGRAINE
     Dosage: (400 MG, 100 MG IN AM, 100 MG AT DNINER, 200 MG AT HS ORAL) ; (150 MG QID ORAL)
     Route: 048
     Dates: start: 20100801, end: 20101001
  2. LACOSAMIDE [Suspect]
     Indication: CLUSTER HEADACHE
     Dosage: (400 MG, 100 MG IN AM, 100 MG AT DNINER, 200 MG AT HS ORAL) ; (150 MG QID ORAL)
     Route: 048
     Dates: start: 20100801, end: 20101001
  3. LACOSAMIDE [Suspect]
     Indication: MIGRAINE
     Dosage: (400 MG, 100 MG IN AM, 100 MG AT DNINER, 200 MG AT HS ORAL) ; (150 MG QID ORAL)
     Route: 048
     Dates: start: 20100428
  4. LACOSAMIDE [Suspect]
     Indication: CLUSTER HEADACHE
     Dosage: (400 MG, 100 MG IN AM, 100 MG AT DNINER, 200 MG AT HS ORAL) ; (150 MG QID ORAL)
     Route: 048
     Dates: start: 20100428
  5. BECLOMETHASONE [Concomitant]
  6. ALBUTEROL [Concomitant]
  7. ALLERGY MEDICATION [Concomitant]

REACTIONS (13)
  - BLOOD POTASSIUM DECREASED [None]
  - HYPOTENSION [None]
  - URINARY INCONTINENCE [None]
  - SYNCOPE [None]
  - LOSS OF CONSCIOUSNESS [None]
  - HEART RATE IRREGULAR [None]
  - AORTIC STENOSIS [None]
  - SOMNOLENCE [None]
  - ARRHYTHMIA [None]
  - FALL [None]
  - ATRIAL FIBRILLATION [None]
  - DISTURBANCE IN ATTENTION [None]
  - MUSCLE TWITCHING [None]
